FAERS Safety Report 7043296-2 (Version None)
Quarter: 2010Q4

REPORT INFORMATION
  Report Type: 
  Country: None (occurrence: None)
  Receive Date: 20101013
  Receipt Date: 20100309
  Transmission Date: 20110411
  Serious: No
  Sender: FDA-Public Use
  Company Number: US-ASTRAZENECA-2010SE10191

PATIENT
  Age: 802 Month
  Sex: Female
  Weight: 77.1 kg

DRUGS (10)
  1. SYMBICORT [Suspect]
     Indication: ASTHMA
     Dosage: 160/4.5 UG TWO PUFFS ONCE A DAY
     Route: 055
     Dates: start: 20090101
  2. HYDROCHLOROTHIAZIDE [Concomitant]
  3. SINGULAIR [Concomitant]
  4. PROVENTIL [Concomitant]
  5. METOPROLOL SUCCINATE [Concomitant]
     Indication: BLOOD PRESSURE
  6. ACIPHEX [Concomitant]
  7. ATROVENT [Concomitant]
  8. ALBUTEROL [Concomitant]
  9. CLARITIN [Concomitant]
     Indication: HYPERSENSITIVITY
  10. AMLOPEDINE [Concomitant]
     Indication: BLOOD PRESSURE

REACTIONS (1)
  - COUGH [None]
